FAERS Safety Report 7242137-8 (Version None)
Quarter: 2011Q1

REPORT INFORMATION
  Report Type: 
  Country: None (occurrence: None)
  Receive Date: 20110124
  Receipt Date: 20110118
  Transmission Date: 20110831
  Serious: Yes (Death)
  Sender: FDA-Public Use
  Company Number: AR-PFIZER INC-2011013163

PATIENT
  Age: 75 Year
  Sex: Male

DRUGS (3)
  1. BLINDED THERAPY [Suspect]
     Indication: PROPHYLAXIS
     Dosage: UNK
     Route: 048
  2. BLINDED THERAPY [Suspect]
     Indication: THROMBOSIS PROPHYLAXIS
  3. SILDENAFIL CITRATE [Suspect]
     Dosage: UNK

REACTIONS (1)
  - SHOCK [None]
